FAERS Safety Report 21132791 (Version 2)
Quarter: 2022Q3

REPORT INFORMATION
  Report Type: Report from Study
  Country: MX (occurrence: MX)
  Receive Date: 20220726
  Receipt Date: 20220809
  Transmission Date: 20221027
  Serious: Yes (Other)
  Sender: FDA-Public Use
  Company Number: MX-NOVARTISPH-NVSC2022MX168666

PATIENT
  Age: 38 Year
  Sex: Male
  Weight: 62 kg

DRUGS (1)
  1. GILENYA [Suspect]
     Active Substance: FINGOLIMOD HYDROCHLORIDE
     Indication: Multiple sclerosis
     Dosage: 0.5 MG, QD
     Route: 048
     Dates: start: 20220117

REACTIONS (3)
  - Paralysis [Not Recovered/Not Resolved]
  - Hypoaesthesia [Not Recovered/Not Resolved]
  - Accident [Recovered/Resolved with Sequelae]

NARRATIVE: CASE EVENT DATE: 20220624
